FAERS Safety Report 7862251-3 (Version None)
Quarter: 2011Q4

REPORT INFORMATION
  Report Type: 
  Country: None (occurrence: None)
  Receive Date: 20111027
  Receipt Date: 20101103
  Transmission Date: 20120403
  Serious: No
  Sender: FDA-Public Use
  Company Number: US-AMGEN-USASP2010003653

PATIENT
  Age: 46 Year
  Sex: Female

DRUGS (4)
  1. ZOLOFT [Concomitant]
     Dosage: 25 MG, UNK
  2. SYNTHROID [Concomitant]
     Dosage: 25 MG, UNK
  3. MULTI-VITAMINS [Concomitant]
     Dosage: UNK
  4. ENBREL [Suspect]
     Indication: PRODUCT USED FOR UNKNOWN INDICATION
     Dosage: 50 MG, QWK

REACTIONS (1)
  - INJECTION SITE SWELLING [None]
